FAERS Safety Report 15701360 (Version 3)
Quarter: 2019Q2

REPORT INFORMATION
  Report Type: Spontaneous
  Country: US (occurrence: US)
  Receive Date: 20181207
  Receipt Date: 20190524
  Transmission Date: 20190711
  Serious: Yes (Other)
  Sender: FDA-Public Use
  Company Number: US-JAZZ-JPI-P-021759

PATIENT
  Age: 41 Year
  Sex: Female
  Weight: 53.18 kg

DRUGS (24)
  1. XYREM [Suspect]
     Active Substance: SODIUM OXYBATE
     Dosage: 2.25 G, BID
     Route: 048
     Dates: start: 20120924
  2. NITROGLYCERIN. [Concomitant]
     Active Substance: NITROGLYCERIN
     Indication: MYOCARDIAL INFARCTION
     Dosage: UNK
  3. ALBUTEROL SULFATE. [Concomitant]
     Active Substance: ALBUTEROL SULFATE
     Indication: PULMONARY FIBROSIS
  4. XYREM [Suspect]
     Active Substance: SODIUM OXYBATE
     Dosage: 3.75 G, BID
     Route: 048
     Dates: start: 201302, end: 201309
  5. ZONISAMIDE. [Suspect]
     Active Substance: ZONISAMIDE
     Dosage: 100 MG, BID
     Route: 048
     Dates: start: 20120518, end: 20120610
  6. WARFARIN SODIUM. [Concomitant]
     Active Substance: WARFARIN SODIUM
     Indication: VENOUS THROMBOSIS
     Dosage: UNK
  7. HYDROCODONE [Concomitant]
     Active Substance: HYDROCODONE
     Indication: VENOUS PRESSURE
     Dosage: UNK
  8. TRIAMCINOLONE [Concomitant]
     Active Substance: TRIAMCINOLONE
     Indication: SINUS DISORDER
  9. XYREM [Suspect]
     Active Substance: SODIUM OXYBATE
     Dosage: 2.25 G, BID
     Route: 048
     Dates: start: 20120605, end: 20120610
  10. XYREM [Suspect]
     Active Substance: SODIUM OXYBATE
     Dosage: 2.25 G, BID
     Route: 048
     Dates: start: 201206, end: 2012
  11. XYREM [Suspect]
     Active Substance: SODIUM OXYBATE
     Dosage: 2.5 GM SECOND DOSE
     Route: 048
     Dates: start: 2012, end: 20120713
  12. XYREM [Suspect]
     Active Substance: SODIUM OXYBATE
     Dosage: 3 G, BID
     Route: 048
     Dates: start: 2012, end: 2012
  13. ATORVASTATIN CALCIUM. [Concomitant]
     Active Substance: ATORVASTATIN CALCIUM
     Indication: BLOOD CHOLESTEROL INCREASED
     Dosage: UNK
  14. XYREM [Suspect]
     Active Substance: SODIUM OXYBATE
     Indication: NARCOLEPSY
     Dosage: 2.25 G, BID
     Route: 048
     Dates: start: 20120525, end: 20120531
  15. XYREM [Suspect]
     Active Substance: SODIUM OXYBATE
     Dosage: 3 G, QD
     Route: 048
     Dates: start: 20120604, end: 20120604
  16. XYREM [Suspect]
     Active Substance: SODIUM OXYBATE
     Dosage: 3 G, BID
     Route: 048
     Dates: start: 20120611, end: 201206
  17. ALBUTEROL SULFATE. [Concomitant]
     Active Substance: ALBUTEROL SULFATE
     Indication: ASTHMA
     Dosage: UNK
  18. XYREM [Suspect]
     Active Substance: SODIUM OXYBATE
     Dosage: 3 GM FIRST DOSE
     Route: 048
     Dates: start: 2012, end: 20120713
  19. ADDERALL [Concomitant]
     Active Substance: AMPHETAMINE ASPARTATE\AMPHETAMINE SULFATE\DEXTROAMPHETAMINE SACCHARATE\DEXTROAMPHETAMINE SULFATE
     Indication: PRODUCT USED FOR UNKNOWN INDICATION
     Dosage: UNK
  20. XYREM [Suspect]
     Active Substance: SODIUM OXYBATE
     Indication: CATAPLEXY
     Dosage: 3 G, BID
     Route: 048
     Dates: start: 20120601, end: 20120603
  21. ZONISAMIDE. [Suspect]
     Active Substance: ZONISAMIDE
     Indication: VENOUS OCCLUSION
     Dosage: 100 MG, QD
     Route: 048
     Dates: start: 20120507
  22. LEVOTHYROXINE. [Concomitant]
     Active Substance: LEVOTHYROXINE
     Indication: HYPOTHYROIDISM
     Dosage: UNK
  23. HYDROCORTISONE. [Concomitant]
     Active Substance: HYDROCORTISONE
     Indication: PRODUCT USED FOR UNKNOWN INDICATION
     Dosage: UNK
  24. AMPHETAMINE [Concomitant]
     Active Substance: AMPHETAMINE
     Indication: PRODUCT USED FOR UNKNOWN INDICATION
     Dosage: UNK

REACTIONS (46)
  - Cyanosis [Unknown]
  - Product taste abnormal [Unknown]
  - Dizziness [Unknown]
  - Condition aggravated [Unknown]
  - Somnolence [Unknown]
  - Decreased appetite [Unknown]
  - Weight decreased [Recovered/Resolved]
  - Screaming [Recovered/Resolved]
  - Muscle tightness [Unknown]
  - Hypoaesthesia [Not Recovered/Not Resolved]
  - Rash [Not Recovered/Not Resolved]
  - Pain in extremity [Unknown]
  - Irritability [Unknown]
  - Product preparation error [Unknown]
  - Skin discolouration [Not Recovered/Not Resolved]
  - Hypotonia [Unknown]
  - Rash pruritic [Unknown]
  - Feeling cold [Recovered/Resolved]
  - Condition aggravated [Recovered/Resolved]
  - Tremor [Unknown]
  - Headache [Not Recovered/Not Resolved]
  - Eye haemorrhage [Not Recovered/Not Resolved]
  - Poor peripheral circulation [Unknown]
  - Condition aggravated [Unknown]
  - Dysphagia [Unknown]
  - Musculoskeletal chest pain [Unknown]
  - Dry mouth [Unknown]
  - Gastrointestinal pain [Unknown]
  - Eye contusion [Not Recovered/Not Resolved]
  - Back pain [Not Recovered/Not Resolved]
  - Drug ineffective [Unknown]
  - Skin tightness [Unknown]
  - Cholelithiasis [Unknown]
  - Contusion [Unknown]
  - Condition aggravated [Unknown]
  - Muscle spasms [Recovered/Resolved]
  - Paraesthesia [Unknown]
  - Exophthalmos [Recovering/Resolving]
  - Dysgeusia [Unknown]
  - Feeling abnormal [Unknown]
  - Muscular weakness [Unknown]
  - Nausea [Unknown]
  - Abdominal pain upper [Not Recovered/Not Resolved]
  - Fatigue [Unknown]
  - Breast atrophy [Not Recovered/Not Resolved]
  - Gait disturbance [Unknown]

NARRATIVE: CASE EVENT DATE: 2012
